FAERS Safety Report 8518254-9 (Version None)
Quarter: 2012Q3

REPORT INFORMATION
  Report Type: 
  Country: None (occurrence: None)
  Receive Date: 20120718
  Receipt Date: 20120130
  Transmission Date: 20120928
  Serious: No
  Sender: FDA-Public Use
  Company Number: US-BRISTOL-MYERS SQUIBB COMPANY-16274573

PATIENT
  Age: 31 Year
  Sex: Male

DRUGS (1)
  1. COUMADIN [Suspect]
     Indication: PULMONARY THROMBOSIS
     Dosage: A COUPLE OF WEEKS AGO
     Route: 048
     Dates: start: 20110101

REACTIONS (3)
  - OEDEMA PERIPHERAL [None]
  - SOMNOLENCE [None]
  - DIZZINESS [None]
